FAERS Safety Report 7639184-0 (Version None)
Quarter: 2011Q3

REPORT INFORMATION
  Report Type: 
  Country: None (occurrence: None)
  Receive Date: 20110721
  Receipt Date: 20110707
  Transmission Date: 20111222
  Serious: Yes (Hospitalization)
  Sender: FDA-Public Use
  Company Number: GER/GER/11/0019036

PATIENT
  Age: 32 Year
  Sex: Female

DRUGS (9)
  1. RISPERDAL [Suspect]
     Indication: PRODUCT USED FOR UNKNOWN INDICATION
     Dosage: 0.5 MG, ORAL 1MG, ORAL 2 MG, ORAL 3 MG, ORAL 2 MG, ORAL
     Route: 048
     Dates: start: 20110131, end: 20110311
  2. RISPERDAL [Suspect]
     Indication: PRODUCT USED FOR UNKNOWN INDICATION
     Dosage: 0.5 MG, ORAL 1MG, ORAL 2 MG, ORAL 3 MG, ORAL 2 MG, ORAL
     Route: 048
     Dates: start: 20110127, end: 20110130
  3. RISPERDAL [Suspect]
     Indication: PRODUCT USED FOR UNKNOWN INDICATION
     Dosage: 0.5 MG, ORAL 1MG, ORAL 2 MG, ORAL 3 MG, ORAL 2 MG, ORAL
     Route: 048
     Dates: start: 20110124, end: 20110126
  4. RISPERDAL [Suspect]
     Indication: PRODUCT USED FOR UNKNOWN INDICATION
     Dosage: 0.5 MG, ORAL 1MG, ORAL 2 MG, ORAL 3 MG, ORAL 2 MG, ORAL
     Route: 048
     Dates: start: 20110223
  5. RISPERDAL [Suspect]
     Indication: PRODUCT USED FOR UNKNOWN INDICATION
     Dosage: 0.5 MG, ORAL 1MG, ORAL 2 MG, ORAL 3 MG, ORAL 2 MG, ORAL
     Route: 048
     Dates: start: 20110312, end: 20110323
  6. SEROQUEL [Concomitant]
  7. LORAZEPAM [Concomitant]
  8. CITALOPRAM HYDROBROMIDE [Suspect]
     Indication: PRODUCT USED FOR UNKNOWN INDICATION
     Dosage: 20 MG, ORAL
     Route: 048
     Dates: start: 20110101
  9. EUNERPAN (MELPERONE HYDROCHLORIDE) [Concomitant]

REACTIONS (2)
  - CONDITION AGGRAVATED [None]
  - GALACTORRHOEA [None]
